FAERS Safety Report 24551752 (Version 1)
Quarter: 2024Q4

REPORT INFORMATION
  Report Type: Spontaneous
  Country: GB (occurrence: GB)
  Receive Date: 20241026
  Receipt Date: 20241026
  Transmission Date: 20250115
  Serious: Yes (Other)
  Sender: AUROBINDO
  Company Number: GB-MHRA-EMIS-6638-5adcc630-130d-49bb-8525-418db17c36f7

PATIENT
  Age: 87 Year
  Sex: Female
  Weight: 94 kg

DRUGS (4)
  1. DONEPEZIL [Suspect]
     Active Substance: DONEPEZIL
     Indication: Adverse drug reaction
     Dosage: UNK UNK, ONCE A DAY (ONE TO BE TAKEN AT NIGHT)
     Route: 065
     Dates: start: 20240924
  2. BISOPROLOL [Concomitant]
     Active Substance: BISOPROLOL\BISOPROLOL FUMARATE
     Indication: Product used for unknown indication
     Dosage: 2.5 MILLIGRAM
     Route: 065
  3. DONEPEZIL [Concomitant]
     Active Substance: DONEPEZIL
     Indication: Adverse drug reaction
     Dosage: UNK (ONE TO BE TAKEN AT NIGHT FOR FIRST MONTH THEN UP TO 10MG AT NIGHT IF TOLERATED)
     Route: 065
     Dates: start: 20240820, end: 20241002
  4. DONEPEZIL [Concomitant]
     Active Substance: DONEPEZIL
     Dosage: UNK (ONE TO BE TAKEN AT NIGHT FOR FIRST MONTH THEN UP TO 10MG AT NIGHT IF TOLERATED)
     Route: 065
     Dates: start: 20240820

REACTIONS (2)
  - Syncope [Unknown]
  - Bradycardia [Recovered/Resolved]

NARRATIVE: CASE EVENT DATE: 20241001
